FAERS Safety Report 9140033 (Version 1)
Quarter: 2013Q1

REPORT INFORMATION
  Report Type: Spontaneous
  Country: ES (occurrence: ES)
  Receive Date: 20130305
  Receipt Date: 20130305
  Transmission Date: 20140127
  Serious: Yes (Other)
  Sender: FDA-Public Use
  Company Number: PHHY2013ES008498

PATIENT
  Age: 6 Year
  Sex: Male

DRUGS (2)
  1. METHOTREXATE [Suspect]
     Indication: ACUTE LYMPHOCYTIC LEUKAEMIA
     Dosage: 3 MG/M2, 3 TIMES
     Route: 042
  2. METHOTREXATE [Suspect]
     Dosage: 3 MG/M2, 14 TIMES
     Route: 037

REACTIONS (8)
  - Neurotoxicity [Not Recovered/Not Resolved]
  - Demyelination [Not Recovered/Not Resolved]
  - Leukoencephalopathy [Unknown]
  - Dystonia [Not Recovered/Not Resolved]
  - Dyskinesia [Not Recovered/Not Resolved]
  - Myoclonus [Not Recovered/Not Resolved]
  - Cognitive disorder [Not Recovered/Not Resolved]
  - Hemiparesis [Unknown]
